FAERS Safety Report 6016809-7 (Version None)
Quarter: 2008Q4

REPORT INFORMATION
  Report Type: 
  Country: None (occurrence: None)
  Receive Date: 20081219
  Receipt Date: 20081210
  Transmission Date: 20090506
  Serious: Yes (Other)
  Sender: FDA-Public Use
  Company Number: ENTC2008-0394

PATIENT
  Sex: Male

DRUGS (3)
  1. STALEVO 100 [Suspect]
     Indication: PARKINSON'S DISEASE
  2. SINEMET [Concomitant]
  3. EXELON [Concomitant]

REACTIONS (2)
  - COMPULSIVE SEXUAL BEHAVIOUR [None]
  - PATHOLOGICAL GAMBLING [None]
